FAERS Safety Report 23892884 (Version 1)
Quarter: 2024Q2

REPORT INFORMATION
  Report Type: Spontaneous
  Country: US (occurrence: US)
  Receive Date: 20240524
  Receipt Date: 20240524
  Transmission Date: 20240716
  Serious: No
  Sender: FDA-Public Use
  Company Number: US-BRISTOL-MYERS SQUIBB COMPANY-2024-080754

PATIENT
  Age: 71 Year
  Sex: Male

DRUGS (1)
  1. ONUREG [Suspect]
     Active Substance: AZACITIDINE
     Indication: Peripheral T-cell lymphoma unspecified
     Dosage: DOSE: 300; FREQUENCY: DAYS 1-14 OF 35 DAY CYCLE
     Route: 048

REACTIONS (1)
  - Off label use [Unknown]
